FAERS Safety Report 12704095 (Version 3)
Quarter: 2020Q3

REPORT INFORMATION
  Report Type: Spontaneous
  Country: US (occurrence: US)
  Receive Date: 20160831
  Receipt Date: 20200824
  Transmission Date: 20201102
  Serious: Yes (Death, Hospitalization)
  Sender: FDA-Public Use
  Company Number: US-JNJFOC-20160821385

PATIENT
  Age: 50 Year
  Sex: Female

DRUGS (2)
  1. XARELTO [Suspect]
     Active Substance: RIVAROXABAN
     Indication: THROMBOSIS PROPHYLAXIS
     Route: 048
     Dates: start: 20150917, end: 201509
  2. XARELTO [Suspect]
     Active Substance: RIVAROXABAN
     Dosage: 15 AND 20 MG
     Route: 048
     Dates: start: 20150918, end: 20150923

REACTIONS (3)
  - Haemorrhagic stroke [Fatal]
  - Epistaxis [Unknown]
  - Thrombocytopenia [Unknown]

NARRATIVE: CASE EVENT DATE: 201509
